FAERS Safety Report 11519392 (Version 1)
Quarter: 2015Q3

REPORT INFORMATION
  Report Type: Spontaneous
  Country: CN (occurrence: CN)
  Receive Date: 20150918
  Receipt Date: 20150918
  Transmission Date: 20151125
  Serious: Yes (Other)
  Sender: FDA-Public Use
  Company Number: CN-HOSPIRA-3002296

PATIENT
  Age: 62 Year
  Sex: Female

DRUGS (1)
  1. ANZATAX                            /00285201/ [Suspect]
     Active Substance: CLONAZEPAM
     Indication: OVARIAN CANCER
     Dosage: STRENGTH: 30 MG, INFUSION RATE: 10D/MIN
     Route: 041
     Dates: end: 201509

REACTIONS (3)
  - Head discomfort [Recovered/Resolved]
  - Dyspnoea [Recovered/Resolved]
  - Hypersensitivity [Recovered/Resolved]

NARRATIVE: CASE EVENT DATE: 201509
